FAERS Safety Report 9783184 (Version 1)
Quarter: 2013Q4

REPORT INFORMATION
  Report Type: Spontaneous
  Country: BE (occurrence: None)
  Receive Date: 20131223
  Receipt Date: 20131223
  Transmission Date: 20140711
  Serious: Yes (Other)
  Sender: FDA-Public Use
  Company Number: 2013AP010561

PATIENT
  Age: 69 Year
  Sex: Male

DRUGS (11)
  1. FLUCONAZOLE [Suspect]
     Indication: CANDIDA INFECTION
     Dosage: 200 MG; BID
  2. FLUCONAZOLE (FLUCONAZOLE) [Concomitant]
  3. DIGOXIN (DIGOXIN) [Concomitant]
  4. MOLSIDOMINE (MOLSIDOMINE) [Concomitant]
  5. ALTIZIDE (ALTIZIDE) [Concomitant]
  6. SPIRONOLACTONE (SPIRONOLACTONE) [Concomitant]
  7. AMITRIPTYLINE (AMITRIPTYLINE) [Concomitant]
  8. TRAMADOL (TRAMADOL) [Concomitant]
  9. FLUTICASONE PROPIONATE W/SALMETEROL (FLUTICASONE PROPIONATE W/SALMETEROL) [Concomitant]
  10. FENOTEROL W/IPRATROPIUM BROMIDE (FENOTEROL W/IPRATROPIUM BROMIDE) [Concomitant]
  11. INSULIN (INSULIN) [Concomitant]

REACTIONS (3)
  - Drug resistance [None]
  - Treatment failure [None]
  - Disease recurrence [None]
